FAERS Safety Report 5309973-6 (Version None)
Quarter: 2007Q2

REPORT INFORMATION
  Report Type: 
  Country: None (occurrence: None)
  Receive Date: 20070427
  Receipt Date: 20070417
  Transmission Date: 20071010
  Serious: Yes (Other)
  Sender: FDA-Public Use
  Company Number: 2007AP02034

PATIENT
  Age: 25826 Day
  Sex: Female
  Weight: 47 kg

DRUGS (4)
  1. CRESTOR [Suspect]
     Indication: HYPERCHOLESTEROLAEMIA
     Route: 048
     Dates: start: 20061221, end: 20070306
  2. MAIBASTAN [Concomitant]
     Indication: HYPERCHOLESTEROLAEMIA
     Dates: end: 20061024
  3. MEVALOTIN [Concomitant]
     Route: 048
     Dates: start: 20061106, end: 20061221
  4. LIPITOR [Concomitant]
     Indication: BLOOD CHOLESTEROL INCREASED
     Dates: start: 20061024, end: 20061106

REACTIONS (3)
  - HYPOALBUMINAEMIA [None]
  - OEDEMA PERIPHERAL [None]
  - PROTEINURIA [None]
